FAERS Safety Report 5334169-1 (Version None)
Quarter: 2007Q2

REPORT INFORMATION
  Report Type: 
  Country: None (occurrence: None)
  Receive Date: 20070523
  Receipt Date: 20070523
  Transmission Date: 20071010
  Serious: Yes (Life-Threatening, Hospitalization, Other)
  Sender: FDA-Public Use
  Company Number: None

PATIENT
  Age: 77 Year
  Sex: Female
  Weight: 53.978 kg

DRUGS (1)
  1. AMOXICILLIN [Suspect]
     Indication: PREMEDICATION
     Dosage: SEE IMAGE

REACTIONS (10)
  - CHEST INJURY [None]
  - CHEST PAIN [None]
  - CONVULSION [None]
  - DEAFNESS [None]
  - EXCORIATION [None]
  - INSOMNIA [None]
  - LIMB INJURY [None]
  - PRESCRIBED OVERDOSE [None]
  - ROAD TRAFFIC ACCIDENT [None]
  - STRESS [None]
